FAERS Safety Report 9443633 (Version 3)
Quarter: 2013Q3

REPORT INFORMATION
  Report Type: Spontaneous
  Country: JP (occurrence: US)
  Receive Date: 20130806
  Receipt Date: 20130822
  Transmission Date: 20140515
  Serious: Yes (Hospitalization, Other)
  Sender: FDA-Public Use
  Company Number: JP-ASTRAZENECA-2013SE60410

PATIENT
  Age: 6 Month
  Sex: Male

DRUGS (1)
  1. PALIVIZIMAB [Suspect]
     Route: 030

REACTIONS (5)
  - Respiratory syncytial virus infection [Unknown]
  - Bronchopneumonia [Unknown]
  - Asthma [Unknown]
  - Bullous lung disease [Unknown]
  - Emphysema [Unknown]
